FAERS Safety Report 15422454 (Version 1)
Quarter: 2018Q3

REPORT INFORMATION
  Report Type: Spontaneous
  Country: GB (occurrence: GB)
  Receive Date: 20180925
  Receipt Date: 20180925
  Transmission Date: 20181010
  Serious: Yes (Life-Threatening, Hospitalization, Disabling, Other)
  Sender: FDA-Public Use
  Company Number: GB-TEVA-2018-GB-957876

PATIENT
  Age: 22 Year
  Sex: Female
  Weight: 48 kg

DRUGS (2)
  1. DIAZEPAM. [Concomitant]
     Active Substance: DIAZEPAM
     Route: 065
  2. TRAMADOL. [Suspect]
     Active Substance: TRAMADOL
     Route: 048
     Dates: start: 20140401, end: 20180529

REACTIONS (2)
  - Blindness [Recovering/Resolving]
  - Dependence [Unknown]

NARRATIVE: CASE EVENT DATE: 2015
